FAERS Safety Report 6307299-5 (Version None)
Quarter: 2009Q3

REPORT INFORMATION
  Report Type: 
  Country: None (occurrence: None)
  Receive Date: 20090813
  Receipt Date: 20090813
  Transmission Date: 20100115
  Serious: Yes (Hospitalization)
  Sender: FDA-Public Use
  Company Number: ES-PFIZER INC-2009235156

PATIENT
  Age: 46 Year

DRUGS (4)
  1. ZARATOR [Suspect]
     Indication: HYPERCHOLESTEROLAEMIA
     Dosage: 20 MG, 1X/DAY
     Route: 048
     Dates: start: 20080310
  2. ALLOPURINOL [Suspect]
     Indication: HYPERURICAEMIA
     Dosage: 300 MG, 1X/DAY
     Route: 048
     Dates: start: 20080310, end: 20090129
  3. COLCHIMAX [Concomitant]
     Indication: GOUT
     Dosage: UNK
     Route: 048
     Dates: start: 20080310
  4. IBUPROFEN [Concomitant]
     Indication: GOUT
     Dosage: 600 MG, 3X/DAY
     Route: 048
     Dates: start: 20080310, end: 20081027

REACTIONS (1)
  - GYNAECOMASTIA [None]
